FAERS Safety Report 6683128-5 (Version None)
Quarter: 2010Q2

REPORT INFORMATION
  Report Type: 
  Country: None (occurrence: None)
  Receive Date: 20100413
  Receipt Date: 20100330
  Transmission Date: 20101027
  Serious: Yes (Hospitalization, Other)
  Sender: FDA-Public Use
  Company Number: FR-001332

PATIENT
  Sex: Male
  Weight: 14 kg

DRUGS (1)
  1. MINIRIN [Suspect]
     Indication: DIABETES MELLITUS
     Dosage: 0.7 MG ORAL
     Route: 048
     Dates: start: 20090901

REACTIONS (4)
  - ATRIAL THROMBOSIS [None]
  - DEEP VEIN THROMBOSIS [None]
  - PYREXIA [None]
  - VENA CAVA THROMBOSIS [None]
